FAERS Safety Report 14752381 (Version 6)
Quarter: 2019Q3

REPORT INFORMATION
  Report Type: Spontaneous
  Country: BR (occurrence: BR)
  Receive Date: 20180412
  Receipt Date: 20190703
  Transmission Date: 20191004
  Serious: Yes (Hospitalization, Other)
  Sender: FDA-Public Use
  Company Number: BR-ALEXION PHARMACEUTICALS INC.-A201803995

PATIENT
  Age: 34 Year
  Sex: Female
  Weight: 56 kg

DRUGS (8)
  1. SOLIRIS [Suspect]
     Active Substance: ECULIZUMAB
     Dosage: 900 MG, Q2W
     Route: 042
  2. ACETYLSALICYLIC ACID [Concomitant]
     Active Substance: ASPIRIN
     Indication: PRODUCT USED FOR UNKNOWN INDICATION
     Dosage: 100 MG, QD
     Route: 048
  3. GRANULOKINE [Concomitant]
     Active Substance: FILGRASTIM
     Indication: BONE MARROW FAILURE
     Dosage: 1 INJECTION, TIW
     Route: 065
     Dates: start: 2004
  4. PENICILLIN                         /00000901/ [Concomitant]
     Active Substance: PENICILLIN G
     Indication: PRODUCT USED FOR UNKNOWN INDICATION
     Dosage: 500 UI, Q12H
     Route: 048
  5. SOLIRIS [Suspect]
     Active Substance: ECULIZUMAB
     Indication: PAROXYSMAL NOCTURNAL HAEMOGLOBINURIA
     Dosage: 600 MG, QW
     Route: 042
     Dates: start: 20130710, end: 20130731
  6. SOLIRIS [Suspect]
     Active Substance: ECULIZUMAB
     Dosage: 900 MG, Q2W
     Route: 042
     Dates: start: 20130807
  7. SOLIRIS [Suspect]
     Active Substance: ECULIZUMAB
     Dosage: 600 UNK, UNK
     Route: 042
     Dates: start: 201804
  8. EPOETIN ALFA [Concomitant]
     Active Substance: ERYTHROPOIETIN
     Indication: BONE MARROW FAILURE
     Dosage: 1 INJECTION, TIW
     Route: 065
     Dates: start: 2004

REACTIONS (14)
  - Platelet count decreased [Not Recovered/Not Resolved]
  - Blood creatinine abnormal [Recovered/Resolved]
  - Chromaturia [Recovered/Resolved]
  - Haematocrit decreased [Not Recovered/Not Resolved]
  - Muscle disorder [Not Recovered/Not Resolved]
  - Splenomegaly [Not Recovered/Not Resolved]
  - Blood lactate dehydrogenase increased [Unknown]
  - Weight fluctuation [Not Recovered/Not Resolved]
  - Haemolysis [Recovered/Resolved]
  - Depressed mood [Unknown]
  - Fatigue [Unknown]
  - Renal failure [Recovered/Resolved]
  - Abdominal distension [Recovering/Resolving]
  - Urine output decreased [Recovered/Resolved]

NARRATIVE: CASE EVENT DATE: 2018
